FAERS Safety Report 25804751 (Version 1)
Quarter: 2025Q3

REPORT INFORMATION
  Report Type: Spontaneous
  Country: JP (occurrence: JP)
  Receive Date: 20250915
  Receipt Date: 20250915
  Transmission Date: 20251020
  Serious: Yes (Other)
  Sender: AMGEN
  Company Number: JP-AMGEN-JPNSP2025181875

PATIENT
  Age: 7 Decade
  Sex: Female

DRUGS (7)
  1. TARLATAMAB [Suspect]
     Active Substance: TARLATAMAB
     Indication: Small cell lung cancer limited stage
     Route: 065
  2. CARBOPLATIN [Concomitant]
     Active Substance: CARBOPLATIN
  3. ETOPOSIDE [Concomitant]
     Active Substance: ETOPOSIDE
  4. ATEZOLIZUMAB [Concomitant]
     Active Substance: ATEZOLIZUMAB
  5. ATEZOLIZUMAB [Concomitant]
     Active Substance: ATEZOLIZUMAB
  6. AMRUBICIN [Concomitant]
     Active Substance: AMRUBICIN
     Indication: Metastases to central nervous system
  7. TOPOTECAN [Concomitant]
     Active Substance: TOPOTECAN HYDROCHLORIDE
     Indication: Metastases to meninges

REACTIONS (1)
  - Tumour pseudoprogression [Recovered/Resolved]
